FAERS Safety Report 4840059-0 (Version None)
Quarter: 2005Q4

REPORT INFORMATION
  Report Type: 
  Country: None (occurrence: None)
  Receive Date: 20051125
  Receipt Date: 20051111
  Transmission Date: 20060501
  Serious: Yes (Other)
  Sender: FDA-Public Use
  Company Number: 2005US000869

PATIENT
  Age: 60 Year
  Sex: Female

DRUGS (5)
  1. PROGRAF [Suspect]
     Indication: PROPHYLAXIS AGAINST TRANSPLANT REJECTION
  2. EPREX [Suspect]
     Indication: ANAEMIA
  3. PREDNISONE [Concomitant]
  4. WARFARIN (WARFARIN) [Concomitant]
  5. CYCLOSPORINE [Concomitant]

REACTIONS (2)
  - APLASIA PURE RED CELL [None]
  - TREATMENT NONCOMPLIANCE [None]
